FAERS Safety Report 8579143-7 (Version None)
Quarter: 2012Q3

REPORT INFORMATION
  Report Type: 
  Country: None (occurrence: None)
  Receive Date: 20120801
  Receipt Date: 20120801
  Transmission Date: 20120928
  Serious: Yes (Hospitalization)
  Sender: FDA-Public Use
  Company Number: None

PATIENT
  Sex: Male
  Weight: 79.3795 kg

DRUGS (1)
  1. SIPULEUCEL-T N/A DENDREON [Suspect]
     Indication: PROSTATE CANCER METASTATIC
     Dosage: AUTOLOGOUS CELL PRODUCT Q 2 WEEKS X 3 IV
     Route: 042
     Dates: start: 20120521, end: 20120705

REACTIONS (3)
  - DYSPNOEA [None]
  - INTERSTITIAL LUNG DISEASE [None]
  - DISEASE PROGRESSION [None]
